FAERS Safety Report 9374996 (Version 2)
Quarter: 2013Q3

REPORT INFORMATION
  Report Type: Report from Study
  Country: BR (occurrence: BR)
  Receive Date: 20130628
  Receipt Date: 20130902
  Transmission Date: 20140515
  Serious: Yes (Death, Hospitalization, Other)
  Sender: FDA-Public Use
  Company Number: PHHY2013BR066382

PATIENT
  Sex: Female
  Weight: 70 kg

DRUGS (3)
  1. EXJADE [Suspect]
     Indication: MYELOFIBROSIS
     Dosage: 5 DF, DAILY
     Route: 048
  2. ERYTHROPOIETIN [Concomitant]
     Dosage: 1 DF, DAILY
     Route: 058
  3. THALIDOMIDE [Concomitant]
     Indication: IMMUNOMODULATORY THERAPY
     Dosage: 1 DF, UNK
     Route: 048

REACTIONS (3)
  - Gastrointestinal haemorrhage [Fatal]
  - Platelet count decreased [Fatal]
  - Pneumonia [Unknown]
